FAERS Safety Report 9026891 (Version 1)
Quarter: 2013Q1

REPORT INFORMATION
  Report Type: Spontaneous
  Country: US (occurrence: US)
  Receive Date: 20130123
  Receipt Date: 20130123
  Transmission Date: 20140127
  Serious: No
  Sender: FDA-Public Use
  Company Number: US-PFIZER INC-2013024415

PATIENT
  Sex: Female
  Weight: 56.69 kg

DRUGS (3)
  1. LEVOXYL [Suspect]
     Indication: HYPOTHYROIDISM
     Dosage: UNK
     Dates: start: 1993
  2. LEVOXYL [Suspect]
     Dosage: 37.5 UG, 1X/DAY
  3. CYTOMEL [Concomitant]
     Dosage: UNK

REACTIONS (1)
  - Migraine [Recovered/Resolved]
